FAERS Safety Report 5931301-3 (Version None)
Quarter: 2008Q4

REPORT INFORMATION
  Report Type: 
  Country: None (occurrence: None)
  Receive Date: 20081024
  Receipt Date: 20081024
  Transmission Date: 20090506
  Serious: Yes (Hospitalization)
  Sender: FDA-Public Use
  Company Number: None

PATIENT
  Sex: Male
  Weight: 63 kg

DRUGS (16)
  1. VINCRISTINE SULFATE [Suspect]
     Dosage: 2 MG
  2. CYCLOPHOSPHAMIDE [Suspect]
     Dosage: 1298 MG
  3. DOXIL [Suspect]
     Dosage: 69 MG
  4. PREDNISONE [Suspect]
     Dosage: 500 MG
  5. RITUXIMAB [Suspect]
     Dosage: 649 MG
  6. ATRIPLA [Concomitant]
  7. BACTRIM [Concomitant]
  8. CIPROFLOXACIN [Concomitant]
  9. CITALOPRAM HYDROBROMIDE [Concomitant]
  10. COMBIVENT [Concomitant]
  11. LOPERAMIDE HCL [Concomitant]
  12. NEXIUM [Concomitant]
  13. OXYCODONE HCL [Concomitant]
  14. PERCOCET [Concomitant]
  15. SENNA [Concomitant]
  16. SEDROQUEL XR [Concomitant]

REACTIONS (1)
  - SMALL INTESTINAL OBSTRUCTION [None]
